FAERS Safety Report 5860243-7 (Version None)
Quarter: 2008Q3

REPORT INFORMATION
  Report Type: 
  Country: None (occurrence: None)
  Receive Date: 20080827
  Receipt Date: 20070801
  Transmission Date: 20090109
  Serious: No
  Sender: FDA-Public Use
  Company Number: US-ABBOTT-07P-163-0377471-00

PATIENT
  Sex: Male
  Weight: 90.8 kg

DRUGS (3)
  1. NIASPAN [Suspect]
     Indication: BLOOD CHOLESTEROL
     Route: 048
     Dates: start: 20070615
  2. PIOGLITAZONE [Concomitant]
     Indication: DIABETES MELLITUS
  3. GLIPIZIDE [Concomitant]
     Indication: DIABETES MELLITUS

REACTIONS (4)
  - BLOOD GLUCOSE INCREASED [None]
  - HIGH DENSITY LIPOPROTEIN DECREASED [None]
  - LABORATORY TEST ABNORMAL [None]
  - RENAL DISORDER [None]
